FAERS Safety Report 13154811 (Version 2)
Quarter: 2017Q3

REPORT INFORMATION
  Report Type: Report from Study
  Country: US (occurrence: US)
  Receive Date: 20170126
  Receipt Date: 20170728
  Transmission Date: 20171127
  Serious: No
  Sender: FDA-Public Use
  Company Number: US-AMGEN-USASL2016138865

PATIENT
  Age: 59 Year
  Sex: Male

DRUGS (2)
  1. POMALYST [Concomitant]
     Active Substance: POMALIDOMIDE
     Dosage: UNK
     Route: 048
  2. KYPROLIS [Suspect]
     Active Substance: CARFILZOMIB
     Indication: PLASMA CELL MYELOMA
     Dosage: UNK TWICE A WEEK EVERY OTHER WEEK
     Route: 065

REACTIONS (2)
  - Off label use [Unknown]
  - Nausea [Unknown]
